FAERS Safety Report 6420259-9 (Version None)
Quarter: 2009Q4

REPORT INFORMATION
  Report Type: 
  Country: None (occurrence: None)
  Receive Date: 20091029
  Receipt Date: 20091026
  Transmission Date: 20100525
  Serious: Yes (Death, Hospitalization)
  Sender: FDA-Public Use
  Company Number: PHHY2009BR46550

PATIENT
  Age: 86 Year
  Sex: Male

DRUGS (3)
  1. EXELON [Suspect]
     Indication: DEMENTIA ALZHEIMER'S TYPE
     Dosage: UNK
     Route: 048
     Dates: start: 20050101
  2. EXELON [Suspect]
     Dosage: 4.5 MG, BID
     Route: 048
  3. MEMANTINE HCL [Concomitant]

REACTIONS (2)
  - ASPIRATION BRONCHIAL [None]
  - INCREASED UPPER AIRWAY SECRETION [None]
